FAERS Safety Report 25123528 (Version 1)
Quarter: 2025Q1

REPORT INFORMATION
  Report Type: Spontaneous
  Country: CA (occurrence: CA)
  Receive Date: 20250326
  Receipt Date: 20250326
  Transmission Date: 20250409
  Serious: Yes (Other)
  Sender: BAYER HEALTHCARE PHARMACEUTICALS INC.
  Company Number: CA-BAYER-2020-248139

PATIENT
  Age: 53 Year
  Sex: Female
  Weight: 79 kg

DRUGS (4)
  1. CLIMARA [Suspect]
     Active Substance: ESTRADIOL
     Indication: Hormone replacement therapy
     Route: 062
     Dates: start: 20180922, end: 20201112
  2. CLIMARA [Suspect]
     Active Substance: ESTRADIOL
     Indication: Hormone replacement therapy
     Dosage: 1 DF, OW
     Route: 062
  3. PROGESTERONE [Concomitant]
     Active Substance: PROGESTERONE
     Route: 048
  4. SYNTHROID [Concomitant]
     Active Substance: LEVOTHYROXINE SODIUM

REACTIONS (6)
  - Application site pruritus [Recovered/Resolved]
  - Pruritus [Recovered/Resolved]
  - Anxiety [Recovered/Resolved]
  - Confusional state [Recovered/Resolved]
  - Product adhesion issue [None]
  - Application site erythema [Recovered/Resolved]

NARRATIVE: CASE EVENT DATE: 20201018
